FAERS Safety Report 7925707-0 (Version None)
Quarter: 2011Q4

REPORT INFORMATION
  Report Type: 
  Country: None (occurrence: None)
  Receive Date: 20111118
  Receipt Date: 20110411
  Transmission Date: 20120403
  Serious: No
  Sender: FDA-Public Use
  Company Number: US-AMGEN-USASP2011015659

PATIENT
  Age: 74 Year
  Sex: Female
  Weight: 35.374 kg

DRUGS (1)
  1. ENBREL [Suspect]
     Indication: PSORIATIC ARTHROPATHY
     Dosage: 50 MG, QWK
     Dates: start: 20000301, end: 20110306

REACTIONS (3)
  - DYSPHONIA [None]
  - NASAL CONGESTION [None]
  - COUGH [None]
